FAERS Safety Report 23679734 (Version 1)
Quarter: 2024Q1

REPORT INFORMATION
  Report Type: Spontaneous
  Country: JP (occurrence: None)
  Receive Date: 20240327
  Receipt Date: 20240327
  Transmission Date: 20240410
  Serious: Yes (Hospitalization)
  Sender: FDA-Public Use
  Company Number: 2024A070181

PATIENT
  Age: 64 Year
  Sex: Male

DRUGS (2)
  1. IMFINZI [Suspect]
     Active Substance: DURVALUMAB
     Indication: Hepatocellular carcinoma
     Dosage: DOSE UNKNOWN
     Route: 041
  2. IMJUDO [Suspect]
     Active Substance: TREMELIMUMAB\TREMELIMUMAB-ACTL
     Indication: Hepatocellular carcinoma
     Dosage: DOSE UNKNOWN
     Route: 041

REACTIONS (2)
  - Fulminant type 1 diabetes mellitus [Unknown]
  - Diabetic ketoacidosis [Unknown]
